FAERS Safety Report 21867848 (Version 1)
Quarter: 2023Q1

REPORT INFORMATION
  Report Type: Spontaneous
  Country: RO (occurrence: RO)
  Receive Date: 20230116
  Receipt Date: 20230116
  Transmission Date: 20230418
  Serious: Yes (Death)
  Sender: FDA-Public Use
  Company Number: RO-BoehringerIngelheim-2023-BI-212652

PATIENT
  Age: 71 Year
  Sex: Male

DRUGS (1)
  1. OLODATEROL HYDROCHLORIDE\TIOTROPIUM BROMIDE MONOHYDRATE [Suspect]
     Active Substance: OLODATEROL HYDROCHLORIDE\TIOTROPIUM BROMIDE MONOHYDRATE
     Indication: Chronic obstructive pulmonary disease

REACTIONS (6)
  - Motor dysfunction [Fatal]
  - Asthenia [Fatal]
  - Dyspnoea [Fatal]
  - Orthopnoea [Fatal]
  - Productive cough [Fatal]
  - Sputum retention [Fatal]
